FAERS Safety Report 10879798 (Version 1)
Quarter: 2015Q1

REPORT INFORMATION
  Report Type: Spontaneous
  Country: US (occurrence: US)
  Receive Date: 20150302
  Receipt Date: 20150302
  Transmission Date: 20150721
  Serious: No
  Sender: FDA-Public Use
  Company Number: US-PFIZER INC-2015064713

PATIENT
  Age: 70 Year
  Sex: Female
  Weight: 61 kg

DRUGS (6)
  1. IRBESARTAN + HIDROCLOROTIAZIDA ARUDEL [Concomitant]
     Indication: FLUID RETENTION
     Dosage: 150/12.5MG, ONE TABLET AFTER BREAKFAST
     Route: 048
     Dates: start: 200405
  2. METOPROLOL [Concomitant]
     Active Substance: METOPROLOL
     Dosage: 50 MG,ONE TABLET BY MOUTH DAILY AFTER BREAKFAST
     Dates: start: 200405
  3. ATORVASTATIN CALCIUM. [Suspect]
     Active Substance: ATORVASTATIN CALCIUM
     Dosage: UNK
     Dates: start: 2012
  4. CRESTOR [Suspect]
     Active Substance: ROSUVASTATIN CALCIUM
  5. ROSUVASTATIN [Suspect]
     Active Substance: ROSUVASTATIN
     Dosage: UNK
  6. BABY ASPIRIN [Concomitant]
     Active Substance: ASPIRIN
     Indication: ANTICOAGULANT THERAPY
     Dosage: 81 MG, ONE TABLET BY MOUTH AFTER BREAKFAST
     Route: 048
     Dates: start: 200405

REACTIONS (1)
  - Pain in extremity [Unknown]
